FAERS Safety Report 6824656-9 (Version None)
Quarter: 2010Q3

REPORT INFORMATION
  Report Type: 
  Country: None (occurrence: None)
  Receive Date: 20100708
  Receipt Date: 20061107
  Transmission Date: 20110219
  Serious: No
  Sender: FDA-Public Use
  Company Number: US-PFIZER INC-2006139834

PATIENT
  Sex: Female
  Weight: 53.52 kg

DRUGS (7)
  1. CHANTIX [Suspect]
     Indication: SMOKING CESSATION THERAPY
     Dates: start: 20061030
  2. VERAPAMIL [Concomitant]
  3. MAXZIDE [Concomitant]
  4. EFFEXOR [Concomitant]
  5. TOPAMAX [Concomitant]
  6. LEXAPRO [Concomitant]
  7. MUSCLE RELAXANTS [Concomitant]

REACTIONS (3)
  - ABNORMAL DREAMS [None]
  - FATIGUE [None]
  - INSOMNIA [None]
